FAERS Safety Report 9885879 (Version 1)
Quarter: 2014Q1

REPORT INFORMATION
  Report Type: Spontaneous
  Country: CL (occurrence: CL)
  Receive Date: 20140210
  Receipt Date: 20140210
  Transmission Date: 20141002
  Serious: Yes (Other)
  Sender: FDA-Public Use
  Company Number: CL-PFIZER INC-2014034250

PATIENT
  Age: 83 Year
  Sex: Female

DRUGS (7)
  1. LIPITOR [Suspect]
     Indication: BLOOD CHOLESTEROL
     Dosage: 10 MG, 1X/DAY
     Route: 048
     Dates: start: 2010
  2. TELMISARTAN [Concomitant]
     Dosage: 80 MG, UNK
     Dates: start: 2009
  3. ECOTRIN [Concomitant]
     Dosage: UNK
     Dates: start: 2009
  4. EUTIROX [Concomitant]
     Dosage: UNK
     Dates: start: 1977
  5. ESTROGENS CONJUGATED [Concomitant]
     Dosage: UNK
     Dates: start: 1995
  6. OMEGA 3-6-9 [Concomitant]
     Dosage: UNK
     Dates: start: 2009
  7. PASSIFLORA INCARNATA [Concomitant]
     Dosage: UNK
     Dates: start: 1990

REACTIONS (4)
  - Cholelithiasis [Unknown]
  - Vertigo [Not Recovered/Not Resolved]
  - Dizziness [Not Recovered/Not Resolved]
  - Vomiting [Not Recovered/Not Resolved]
